FAERS Safety Report 16615007 (Version 4)
Quarter: 2020Q3

REPORT INFORMATION
  Report Type: Spontaneous
  Country: US (occurrence: US)
  Receive Date: 20190723
  Receipt Date: 20200925
  Transmission Date: 20201102
  Serious: Yes (Other)
  Sender: FDA-Public Use
  Company Number: US-GILEAD-2019-0419388

PATIENT
  Age: 57 Year
  Sex: Male

DRUGS (2)
  1. TRUVADA [Suspect]
     Active Substance: EMTRICITABINE\TENOFOVIR DISOPROXIL FUMARATE
     Dosage: UNK
     Route: 048
     Dates: start: 201902, end: 202001
  2. TRUVADA [Suspect]
     Active Substance: EMTRICITABINE\TENOFOVIR DISOPROXIL FUMARATE
     Indication: PROPHYLAXIS AGAINST HIV INFECTION
     Dosage: UNK
     Route: 048
     Dates: start: 201902, end: 202001

REACTIONS (7)
  - Skeletal injury [Not Recovered/Not Resolved]
  - Nephropathy [Unknown]
  - Bone density decreased [Unknown]
  - Fracture [Unknown]
  - Bone loss [Unknown]
  - Osteoporosis [Unknown]
  - Osteonecrosis [Unknown]

NARRATIVE: CASE EVENT DATE: 2019
